FAERS Safety Report 6168238-3 (Version None)
Quarter: 2009Q2

REPORT INFORMATION
  Report Type: 
  Country: None (occurrence: None)
  Receive Date: 20090423
  Receipt Date: 20090415
  Transmission Date: 20091009
  Serious: Yes (Hospitalization, Other)
  Sender: FDA-Public Use
  Company Number: 188290

PATIENT
  Age: 71 Year
  Sex: Male
  Weight: 40.82 kg

DRUGS (8)
  1. CYTARABINE [Suspect]
     Indication: ACUTE MYELOID LEUKAEMIA
     Dosage: 20 MG/M2, ONCE A DAY, SUBCUTANEOUS; 42.4 MG (ONCE A DAY) INTRAVENOUS
     Route: 058
     Dates: start: 20081118, end: 20081127
  2. CYTARABINE [Suspect]
     Indication: ACUTE MYELOID LEUKAEMIA
     Dosage: 20 MG/M2, ONCE A DAY, SUBCUTANEOUS; 42.4 MG (ONCE A DAY) INTRAVENOUS
     Route: 058
     Dates: start: 20081118, end: 20081127
  3. CYTARABINE [Suspect]
     Indication: ACUTE MYELOID LEUKAEMIA
     Dosage: 20 MG/M2, ONCE A DAY, SUBCUTANEOUS
     Route: 058
     Dates: start: 20081118, end: 20081127
  4. BACTRIM [Concomitant]
  5. FLUCONAZOLE [Concomitant]
  6. RAMIPRIL [Concomitant]
  7. BETAXOLOL [Concomitant]
  8. ATORVASTATIN [Concomitant]

REACTIONS (14)
  - BLOOD ALBUMIN DECREASED [None]
  - BLOOD CALCIUM DECREASED [None]
  - BLOOD CHLORIDE INCREASED [None]
  - CULTURE STOOL POSITIVE [None]
  - DIARRHOEA [None]
  - ENTEROBACTER INFECTION [None]
  - ESCHERICHIA INFECTION [None]
  - HAEMOGLOBIN DECREASED [None]
  - HAEMORRHOIDS [None]
  - KLEBSIELLA INFECTION [None]
  - NEUTROPHIL COUNT DECREASED [None]
  - PANCYTOPENIA [None]
  - PYREXIA [None]
  - WHITE BLOOD CELL COUNT DECREASED [None]
